FAERS Safety Report 5760127-9 (Version None)
Quarter: 2008Q2

REPORT INFORMATION
  Report Type: 
  Country: None (occurrence: None)
  Receive Date: 20080605
  Receipt Date: 20080530
  Transmission Date: 20081010
  Serious: Yes (Death, Life-Threatening, Hospitalization)
  Sender: FDA-Public Use
  Company Number: ES-BOEHRINGER INGELHEIM GMBH, GERMANY-2008-BP-08523RO

PATIENT
  Age: 30 Year
  Sex: Male

DRUGS (8)
  1. METHOTREXATE [Suspect]
     Indication: PROPHYLAXIS
     Route: 037
  2. PREDNISONE TAB [Suspect]
     Indication: ACUTE LYMPHOCYTIC LEUKAEMIA
  3. VINCRISTINE [Suspect]
     Indication: ACUTE LYMPHOCYTIC LEUKAEMIA
  4. DAUNORUBICIN HCL [Suspect]
     Indication: ACUTE LYMPHOCYTIC LEUKAEMIA
  5. CYTARABINE [Suspect]
     Indication: ACUTE LYMPHOCYTIC LEUKAEMIA
  6. ELSPAR [Suspect]
     Indication: ACUTE LYMPHOCYTIC LEUKAEMIA
  7. HYDROCORTISONE [Suspect]
     Indication: PROPHYLAXIS
     Route: 037
  8. IMMUNE GLOBULIN INTRAVENOUS (HUMAN) [Concomitant]
     Indication: EVIDENCE BASED TREATMENT
     Route: 042

REACTIONS (10)
  - CSF IMMUNOGLOBULIN INCREASED [None]
  - CSF PROTEIN INCREASED [None]
  - FEBRILE NEUTROPENIA [None]
  - PNEUMONIA BACTERIAL [None]
  - RADICULOPATHY [None]
  - RESPIRATORY TRACT INFECTION [None]
  - SEPSIS [None]
  - URINARY INCONTINENCE [None]
  - URINARY RETENTION [None]
  - URINARY TRACT INFECTION [None]
